FAERS Safety Report 15480773 (Version 1)
Quarter: 2018Q4

REPORT INFORMATION
  Report Type: Spontaneous
  Country: ES (occurrence: ES)
  Receive Date: 20181010
  Receipt Date: 20181010
  Transmission Date: 20190205
  Serious: Yes (Other)
  Sender: FDA-Public Use
  Company Number: PHHY2018ES115162

PATIENT
  Age: 66 Year
  Sex: Male

DRUGS (2)
  1. EVEROLIMUS. [Suspect]
     Active Substance: EVEROLIMUS
     Indication: CHRONIC GRAFT VERSUS HOST DISEASE
     Dosage: 0.5 MG, Q12H
     Route: 048
     Dates: start: 20160802, end: 20160808
  2. EVEROLIMUS. [Suspect]
     Active Substance: EVEROLIMUS
     Dosage: 1 MG, Q12H
     Route: 048
     Dates: start: 20160809, end: 20160829

REACTIONS (6)
  - Pulmonary toxicity [Unknown]
  - Pyrexia [Unknown]
  - Dyspnoea [Unknown]
  - Pulmonary sepsis [Unknown]
  - Cough [Unknown]
  - Drug level decreased [Unknown]

NARRATIVE: CASE EVENT DATE: 20160829
